FAERS Safety Report 21970997 (Version 1)
Quarter: 2023Q1

REPORT INFORMATION
  Report Type: Spontaneous
  Country: US (occurrence: US)
  Receive Date: 20230209
  Receipt Date: 20230209
  Transmission Date: 20230418
  Serious: No
  Sender: FDA-Public Use
  Company Number: US-BIOGEN-2023BI01186295

PATIENT
  Sex: Female

DRUGS (5)
  1. TYSABRI [Suspect]
     Active Substance: NATALIZUMAB
     Indication: Product used for unknown indication
     Route: 050
  2. OCREVUS [Concomitant]
     Active Substance: OCRELIZUMAB
     Route: 050
  3. FEMYNOR [Concomitant]
     Active Substance: ETHINYL ESTRADIOL\NORGESTIMATE
     Route: 050
  4. MAGNESIUM [Concomitant]
     Active Substance: MAGNESIUM
     Route: 050
  5. HERBALS [Concomitant]
     Active Substance: HERBALS
     Route: 050

REACTIONS (1)
  - Peroneal nerve palsy [Unknown]
